FAERS Safety Report 21342331 (Version 1)
Quarter: 2022Q3

REPORT INFORMATION
  Report Type: Spontaneous
  Country: US (occurrence: None)
  Receive Date: 20220915
  Receipt Date: 20220915
  Transmission Date: 20221026
  Serious: No
  Sender: FDA-Public Use
  Company Number: None

PATIENT
  Age: 6 Year
  Sex: Male
  Weight: 29.25 kg

DRUGS (1)
  1. METHYLPHENIDATE [Suspect]
     Active Substance: METHYLPHENIDATE
     Indication: Attention deficit hyperactivity disorder
     Route: 048
     Dates: start: 20220823, end: 20220915

REACTIONS (8)
  - Therapeutic response changed [None]
  - Drug ineffective [None]
  - Symptom recurrence [None]
  - Aggression [None]
  - Irritability [None]
  - Disturbance in attention [None]
  - Behaviour disorder [None]
  - Condition aggravated [None]

NARRATIVE: CASE EVENT DATE: 20220901
